FAERS Safety Report 8522519 (Version 3)
Quarter: 2013Q1

REPORT INFORMATION
  Report Type: Spontaneous
  Country: US (occurrence: US)
  Receive Date: 20120419
  Receipt Date: 20130327
  Transmission Date: 20140127
  Serious: No
  Sender: FDA-Public Use
  Company Number: US-B.I. PHARMACEUTICALS,INC./RIDGEFIELD-2012-BP-07192BP

PATIENT
  Age: 51 None
  Sex: Female

DRUGS (3)
  1. SPIRIVA HANDIHALER [Suspect]
     Indication: CHRONIC OBSTRUCTIVE PULMONARY DISEASE
     Dosage: 18 MCG
     Route: 055
     Dates: start: 2011
  2. ALBUTEROL [Concomitant]
  3. PREDNISONE [Concomitant]

REACTIONS (4)
  - Bursitis [Recovered/Resolved]
  - Vomiting [Recovered/Resolved]
  - Chronic obstructive pulmonary disease [Unknown]
  - Weight increased [Unknown]
